FAERS Safety Report 5483870-8 (Version None)
Quarter: 2007Q4

REPORT INFORMATION
  Report Type: 
  Country: None (occurrence: None)
  Receive Date: 20071009
  Receipt Date: 20070925
  Transmission Date: 20080405
  Serious: Yes (Hospitalization, Other)
  Sender: FDA-Public Use
  Company Number: FABR-12163

PATIENT
  Age: 51 Year
  Sex: Male
  Weight: 80 kg

DRUGS (8)
  1. FABRAZYME [Suspect]
     Indication: FABRY'S DISEASE
     Dosage: 1 MG/KG Q2WKS IV
     Route: 042
     Dates: start: 20050318
  2. FABRAZYME [Suspect]
     Indication: FABRY'S DISEASE
     Dosage: 0.2 MG/KG Q2WKS IV
     Route: 042
     Dates: start: 20040219, end: 20050317
  3. METOPROLOL [Concomitant]
  4. MONOCEDOCARD [Concomitant]
  5. NEXIUM [Concomitant]
  6. LIPITOR [Concomitant]
  7. LYRICA [Concomitant]
  8. ASPIRIN AND DIPYRIDAMOLE [Concomitant]

REACTIONS (8)
  - DISEASE PROGRESSION [None]
  - GAIT DISTURBANCE [None]
  - NUCLEAR MAGNETIC RESONANCE IMAGING BRAIN ABNORMAL [None]
  - OESOPHAGITIS [None]
  - POLYNEUROPATHY [None]
  - SENSORIMOTOR DISORDER [None]
  - TREATMENT FAILURE [None]
  - WALKING AID USER [None]
